FAERS Safety Report 8357463-9 (Version None)
Quarter: 2012Q2

REPORT INFORMATION
  Report Type: 
  Country: None (occurrence: None)
  Receive Date: 20120511
  Receipt Date: 20120427
  Transmission Date: 20120825
  Serious: Yes (Other)
  Sender: FDA-Public Use
  Company Number: US-1191878

PATIENT
  Sex: Female

DRUGS (1)
  1. TRAVATAN [Suspect]
     Indication: INTRAOCULAR PRESSURE INCREASED
     Dosage: (OPHTHALMIC)
     Route: 047

REACTIONS (3)
  - VIITH NERVE PARALYSIS [None]
  - DIPLOPIA [None]
  - MIGRAINE [None]
